FAERS Safety Report 8290440 (Version 4)
Quarter: 2013Q4

REPORT INFORMATION
  Report Type: Spontaneous
  Country: US (occurrence: None)
  Receive Date: 20111122
  Receipt Date: 20131226
  Transmission Date: 20140711
  Serious: No
  Sender: FDA-Public Use
  Company Number: PHEH2011US01465

PATIENT
  Age: 55 Year
  Sex: Male

DRUGS (5)
  1. GILENYA [Suspect]
     Indication: RELAPSING-REMITTING MULTIPLE SCLEROSIS
     Dosage: 0.5 MG, QD, ORAL
     Route: 048
     Dates: start: 20110712
  2. LOTREL [Concomitant]
  3. VYTORIN [Concomitant]
  4. VITAMIN B12 [Concomitant]
  5. VITAMIN D (ERGOCALCIFEROL) [Concomitant]

REACTIONS (4)
  - Hypoaesthesia [None]
  - Malaise [None]
  - Rash [None]
  - Rash pruritic [None]
